FAERS Safety Report 10506818 (Version 1)
Quarter: 2014Q3

REPORT INFORMATION
  Report Type: Spontaneous
  Country: US (occurrence: None)
  Receive Date: 20140915
  Receipt Date: 20140915
  Transmission Date: 20150326
  Serious: Yes (Hospitalization, Other)
  Sender: FDA-Public Use
  Company Number: 2014-US-005118

PATIENT
  Age: 20 Year
  Sex: Female

DRUGS (3)
  1. AMBIEN(ZOLPIDEM TARTRATE) [Concomitant]
  2. LUNESTA(ESZOPICLONE) [Concomitant]
  3. XYREM [Suspect]
     Active Substance: SODIUM OXYBATE
     Indication: NARCOLEPSY
     Route: 048
     Dates: start: 201202

REACTIONS (2)
  - Drug abuse [None]
  - Drug diversion [None]

NARRATIVE: CASE EVENT DATE: 201404
